FAERS Safety Report 5912876-7 (Version None)
Quarter: 2008Q4

REPORT INFORMATION
  Report Type: 
  Country: None (occurrence: None)
  Receive Date: 20081008
  Receipt Date: 20080930
  Transmission Date: 20090506
  Serious: Yes (Hospitalization, Disabling, Other)
  Sender: FDA-Public Use
  Company Number: US-MERCK-0710USA04007

PATIENT
  Age: 60 Year
  Sex: Female
  Weight: 61 kg

DRUGS (2)
  1. FOSAMAX [Suspect]
     Route: 048
     Dates: end: 20070101
  2. FOSAMAX [Suspect]
     Route: 048
     Dates: start: 19990101, end: 20070101

REACTIONS (27)
  - ABDOMINAL PAIN LOWER [None]
  - ANAEMIA OF CHRONIC DISEASE [None]
  - ARTHRALGIA [None]
  - BREAST DISORDER [None]
  - CELLULITIS [None]
  - CIRCULATORY COLLAPSE [None]
  - FATIGUE [None]
  - GASTROOESOPHAGEAL REFLUX DISEASE [None]
  - HERPES ZOSTER OPHTHALMIC [None]
  - HYPERCHOLESTEROLAEMIA [None]
  - HYPERLIPIDAEMIA [None]
  - HYPERTENSION [None]
  - HYPOKALAEMIA [None]
  - LACUNAR INFARCTION [None]
  - MAJOR DEPRESSION [None]
  - MULTIPLE MYELOMA [None]
  - OSTEONECROSIS [None]
  - OVARIAN CANCER [None]
  - PAROTID ABSCESS [None]
  - PAROTITIS [None]
  - PNEUMONIA [None]
  - PYREXIA [None]
  - SCIATICA [None]
  - SPINAL COLUMN STENOSIS [None]
  - SPINAL CORD COMPRESSION [None]
  - SPINAL DISORDER [None]
  - SUICIDAL IDEATION [None]
